FAERS Safety Report 19061060 (Version 4)
Quarter: 2021Q2

REPORT INFORMATION
  Report Type: Spontaneous
  Country: US (occurrence: US)
  Receive Date: 20210326
  Receipt Date: 20210630
  Transmission Date: 20210717
  Serious: No
  Sender: FDA-Public Use
  Company Number: US-BEH-2021129671

PATIENT
  Age: 51 Year
  Sex: Female

DRUGS (2)
  1. HIZENTRA [Suspect]
     Active Substance: HUMAN IMMUNOGLOBULIN G
     Dosage: 18 GRAM, TOT
     Route: 058
     Dates: start: 20210312, end: 20210312
  2. HIZENTRA [Suspect]
     Active Substance: HUMAN IMMUNOGLOBULIN G
     Indication: IMMUNODEFICIENCY COMMON VARIABLE
     Dosage: 18 GRAM, QW 23 ML PER SITE
     Route: 058
     Dates: start: 201611

REACTIONS (13)
  - Injection site discolouration [Not Recovered/Not Resolved]
  - Injection site vesicles [Unknown]
  - Taste disorder [Unknown]
  - Hyperhidrosis [Unknown]
  - Chills [Unknown]
  - Pain in extremity [Unknown]
  - Injection site pruritus [Unknown]
  - Parosmia [Unknown]
  - Injection site irritation [Recovered/Resolved]
  - Injection site urticaria [Unknown]
  - Nausea [Unknown]
  - Limb discomfort [Unknown]
  - Injection site erythema [Recovered/Resolved]
